FAERS Safety Report 18422372 (Version 1)
Quarter: 2020Q4

REPORT INFORMATION
  Report Type: Spontaneous
  Country: US (occurrence: US)
  Receive Date: 20201023
  Receipt Date: 20201023
  Transmission Date: 20210114
  Serious: Yes (Hospitalization, Other)
  Sender: FDA-Public Use
  Company Number: US-PURDUE-USA-2020-0170887

PATIENT
  Sex: Male

DRUGS (1)
  1. OXYCONTIN [Suspect]
     Active Substance: OXYCODONE HYDROCHLORIDE
     Indication: PAIN
     Dosage: UNK
     Route: 048
     Dates: start: 1998

REACTIONS (12)
  - Jaw fracture [Unknown]
  - Pain [Unknown]
  - Non-Hodgkin^s lymphoma [Unknown]
  - Haematoma [Unknown]
  - Teeth brittle [Unknown]
  - Hospitalisation [Unknown]
  - Surgery [Unknown]
  - Injury [Unknown]
  - Withdrawal syndrome [Unknown]
  - Neck injury [Unknown]
  - Arthritis [Unknown]
  - Fracture [Unknown]

NARRATIVE: CASE EVENT DATE: 2003
